FAERS Safety Report 9604351 (Version 1)
Quarter: 2013Q4

REPORT INFORMATION
  Report Type: Spontaneous
  Country: US (occurrence: US)
  Receive Date: 20131008
  Receipt Date: 20131008
  Transmission Date: 20140711
  Serious: No
  Sender: FDA-Public Use
  Company Number: US-009507513-1310USA002702

PATIENT
  Age: 21 Year
  Sex: Female

DRUGS (1)
  1. IMPLANON [Suspect]
     Indication: CONTRACEPTION
     Dosage: UNK
     Route: 059
     Dates: start: 20120118

REACTIONS (5)
  - Muscle spasms [Unknown]
  - Dizziness [Unknown]
  - Dizziness [Unknown]
  - Menstrual disorder [Unknown]
  - Injection site pain [Unknown]
